FAERS Safety Report 16128014 (Version 5)
Quarter: 2020Q3

REPORT INFORMATION
  Report Type: Spontaneous
  Country: DE (occurrence: DE)
  Receive Date: 20190328
  Receipt Date: 20200724
  Transmission Date: 20201102
  Serious: Yes (Hospitalization, Other)
  Sender: FDA-Public Use
  Company Number: PHHY2019DE063580

PATIENT
  Age: 73 Year
  Sex: Female

DRUGS (8)
  1. ENALAPRIL [Suspect]
     Active Substance: ENALAPRIL
     Indication: HYPERTENSION
     Dosage: 10 MG, QD
     Route: 065
     Dates: start: 2012
  2. ENALAPRIL [Suspect]
     Active Substance: ENALAPRIL
     Dosage: 5 MG, QD
     Route: 065
     Dates: start: 2012
  3. QUILONUM [Concomitant]
     Active Substance: LITHIUM
     Indication: BIPOLAR DISORDER
     Dosage: 0.9 G, QD
     Route: 065
  4. HYDROCHLOROTHIAZIDE. [Suspect]
     Active Substance: HYDROCHLOROTHIAZIDE
     Indication: HYPERTENSION
     Dosage: 12.5 MG, QD
     Route: 065
     Dates: start: 2012
  5. HYPNOREX [Suspect]
     Active Substance: LITHIUM CARBONATE
     Indication: BIPOLAR DISORDER
     Dosage: 0.6 G, QD
     Route: 065
  6. RAMIPRIL. [Concomitant]
     Active Substance: RAMIPRIL
     Indication: HYPERTENSION
     Dosage: 5 MG, UNK
     Route: 065
  7. HYPNOREX [Suspect]
     Active Substance: LITHIUM CARBONATE
     Dosage: 1 G, QD
     Route: 065
  8. HYPNOREX [Suspect]
     Active Substance: LITHIUM CARBONATE
     Dosage: 0.9 G, QD
     Route: 065

REACTIONS (10)
  - Ataxia [Unknown]
  - Toxicity to various agents [Unknown]
  - Drug level increased [Unknown]
  - Dizziness [Unknown]
  - Acute kidney injury [Unknown]
  - Disturbance in attention [Unknown]
  - Asthenia [Unknown]
  - Tremor [Unknown]
  - Accidental exposure to product [Unknown]
  - Depression [Recovering/Resolving]

NARRATIVE: CASE EVENT DATE: 2012
